FAERS Safety Report 24442005 (Version 3)
Quarter: 2024Q4

REPORT INFORMATION
  Report Type: Spontaneous
  Country: US (occurrence: US)
  Receive Date: 20241016
  Receipt Date: 20241223
  Transmission Date: 20250115
  Serious: No
  Sender: ROCHE
  Company Number: US-ROCHE-3514579

PATIENT
  Age: 14 Year
  Sex: Male
  Weight: 63.05 kg

DRUGS (1)
  1. HEMLIBRA [Suspect]
     Active Substance: EMICIZUMAB-KXWH
     Indication: Factor VIII deficiency
     Dosage: STRENGTH: 60 MG/0.4 ML
     Route: 058
     Dates: start: 202303

REACTIONS (2)
  - Haemorrhage [Recovered/Resolved]
  - Muscle haemorrhage [Unknown]

NARRATIVE: CASE EVENT DATE: 20241211
